FAERS Safety Report 13903346 (Version 1)
Quarter: 2017Q3

REPORT INFORMATION
  Report Type: Spontaneous
  Country: JP (occurrence: JP)
  Receive Date: 20170824
  Receipt Date: 20170824
  Transmission Date: 20171127
  Serious: Yes (Hospitalization)
  Sender: FDA-Public Use
  Company Number: PHJP2017JP025895

PATIENT
  Age: 70 Year
  Sex: Female

DRUGS (2)
  1. NEORAL [Suspect]
     Active Substance: CYCLOSPORINE
     Indication: DERMATOMYOSITIS
     Dosage: 135 MG, QD
     Route: 048
  2. NEORAL [Suspect]
     Active Substance: CYCLOSPORINE
     Indication: PYELONEPHRITIS

REACTIONS (6)
  - Concomitant disease aggravated [Recovering/Resolving]
  - Creatinine renal clearance increased [Unknown]
  - Renal impairment [Recovering/Resolving]
  - Urinary tract infection [Unknown]
  - Product use in unapproved indication [Unknown]
  - Pyelonephritis [Recovering/Resolving]

NARRATIVE: CASE EVENT DATE: 20170817
